FAERS Safety Report 8996354 (Version 1)
Quarter: 2013Q1

REPORT INFORMATION
  Report Type: Spontaneous
  Country: US (occurrence: US)
  Receive Date: 20130104
  Receipt Date: 20130104
  Transmission Date: 20140127
  Serious: Yes (Hospitalization)
  Sender: FDA-Public Use
  Company Number: US-BIOGENIDEC-2012BI065101

PATIENT
  Sex: Female

DRUGS (1)
  1. TYSABRI [Suspect]
     Indication: MULTIPLE SCLEROSIS
     Route: 042
     Dates: start: 20061207, end: 20120209

REACTIONS (3)
  - Ligament rupture [Recovered/Resolved]
  - General physical health deterioration [Recovered/Resolved]
  - White blood cell count abnormal [Recovered/Resolved]
